FAERS Safety Report 8877111 (Version 7)
Quarter: 2013Q1

REPORT INFORMATION
  Report Type: Spontaneous
  Country: US (occurrence: US)
  Receive Date: 20121029
  Receipt Date: 20130226
  Transmission Date: 20140127
  Serious: No
  Sender: FDA-Public Use
  Company Number: US-PFIZER INC-2012269741

PATIENT
  Age: 49 Year
  Sex: Male
  Weight: 86.17 kg

DRUGS (5)
  1. PRISTIQ [Suspect]
     Indication: ANXIETY
     Dosage: 50 MG, DAILY
     Route: 048
     Dates: start: 20110520
  2. PRISTIQ [Suspect]
     Indication: DEPRESSION
  3. DEXILANT [Concomitant]
     Indication: GASTROOESOPHAGEAL REFLUX DISEASE
     Dosage: 60MG DAILY
  4. ZYRTEC [Concomitant]
     Indication: RHINITIS SEASONAL
     Dosage: 10 MG, DAILY PRN
  5. XANAX [Concomitant]
     Indication: ANXIETY
     Dosage: 0.25 MG, PRN

REACTIONS (7)
  - Off label use [Not Recovered/Not Resolved]
  - Product quality issue [Unknown]
  - Suspected counterfeit product [Unknown]
  - Feeling abnormal [Recovered/Resolved]
  - Confusional state [Recovered/Resolved]
  - Drug effect decreased [Recovered/Resolved]
  - Headache [Unknown]
